FAERS Safety Report 10653427 (Version 2)
Quarter: 2014Q4

REPORT INFORMATION
  Report Type: Spontaneous
  Country: US (occurrence: US)
  Receive Date: 20141215
  Receipt Date: 20141223
  Transmission Date: 20150529
  Serious: Yes (Other)
  Sender: FDA-Public Use
  Company Number: PHHY2014US163593

PATIENT
  Age: 58 Year
  Sex: Female

DRUGS (6)
  1. BACLOFEN INTRATHECAL [Suspect]
     Active Substance: BACLOFEN
     Indication: MUSCLE SPASTICITY
     Dosage: 1059 UG, QD
     Route: 037
  2. BACLOFEN INTRATHECAL [Suspect]
     Active Substance: BACLOFEN
     Dosage: DOSE REDUCED TO 35 PERCENTAGE
     Route: 037
  3. AKINETON [Suspect]
     Active Substance: BIPERIDEN HYDROCHLORIDE
     Indication: PRODUCT USED FOR UNKNOWN INDICATION
     Dosage: 9 MG, QD
     Route: 065
  4. BACLOFEN INTRATHECAL [Suspect]
     Active Substance: BACLOFEN
     Dosage: DOSE INCREASED AT 10 TO 15 PERCENTAGE
     Route: 037
  5. CLONAZEPAM. [Suspect]
     Active Substance: CLONAZEPAM
     Indication: PRODUCT USED FOR UNKNOWN INDICATION
     Dosage: 0.25 MG, TID
     Route: 065
  6. CLOZARIL [Suspect]
     Active Substance: CLOZAPINE
     Indication: PRODUCT USED FOR UNKNOWN INDICATION
     Route: 065

REACTIONS (14)
  - Perineal pain [Unknown]
  - Anxiety [Unknown]
  - Oxygen saturation decreased [Recovering/Resolving]
  - Proctalgia [Unknown]
  - Back pain [Unknown]
  - Psychosomatic disease [Unknown]
  - Stress [Unknown]
  - Dyskinesia [Unknown]
  - Dysarthria [Recovering/Resolving]
  - Pruritus [Unknown]
  - Akathisia [Unknown]
  - Muscle spasticity [Unknown]
  - Aphasia [Recovering/Resolving]
  - Vulvovaginal pain [Unknown]

NARRATIVE: CASE EVENT DATE: 20141001
